FAERS Safety Report 6012670-5 (Version None)
Quarter: 2008Q4

REPORT INFORMATION
  Report Type: 
  Country: None (occurrence: None)
  Receive Date: 20081217
  Receipt Date: 20081211
  Transmission Date: 20090506
  Serious: Yes (Death, Hospitalization)
  Sender: FDA-Public Use
  Company Number: ITPFP-S-20080004

PATIENT
  Age: 45 Year
  Sex: Female

DRUGS (5)
  1. NAVELBINE [Suspect]
     Indication: BREAST CANCER METASTATIC
     Dosage: 42 MG  IV
     Route: 042
     Dates: start: 20080226
  2. HERCEPTIN [Suspect]
     Indication: BREAST CANCER METASTATIC
     Dosage: 2 6 MG/KG  IV
     Route: 042
     Dates: start: 20070901, end: 20071101
  3. HERCEPTIN [Suspect]
     Indication: BREAST CANCER METASTATIC
     Dosage: 239 MG IV
     Route: 042
     Dates: start: 20080226
  4. FENTANYL-100 [Concomitant]
  5. MORPHINE SULFATE [Concomitant]

REACTIONS (12)
  - CARDIOPULMONARY FAILURE [None]
  - CLONUS [None]
  - CONFUSIONAL STATE [None]
  - CONVULSION [None]
  - DISEASE RECURRENCE [None]
  - ENCEPHALITIS [None]
  - NEUTROPENIA [None]
  - PARANEOPLASTIC SYNDROME [None]
  - PNEUMONIA [None]
  - SEPTIC SHOCK [None]
  - SOMNOLENCE [None]
  - TRISMUS [None]
